FAERS Safety Report 9478369 (Version 1)
Quarter: 2013Q3

REPORT INFORMATION
  Report Type: Report from Study
  Country: CZ (occurrence: CZ)
  Receive Date: 20130827
  Receipt Date: 20130827
  Transmission Date: 20140515
  Serious: Yes (Death)
  Sender: FDA-Public Use
  Company Number: CZ-ASTELLAS-2013EU005317

PATIENT
  Sex: Male

DRUGS (4)
  1. ADVAGRAF [Suspect]
     Indication: IMMUNOSUPPRESSION
     Dosage: 4 MG, UID/QD
     Route: 048
  2. ADVAGRAF [Suspect]
     Dosage: UNK
     Route: 065
  3. PROGRAF [Suspect]
     Indication: IMMUNOSUPPRESSION
     Dosage: UNK
     Route: 065
  4. IMURAN                             /00001501/ [Concomitant]
     Indication: IMMUNOSUPPRESSION
     Dosage: UNK
     Route: 065

REACTIONS (1)
  - Renal cancer metastatic [Fatal]
